FAERS Safety Report 6962222-5 (Version None)
Quarter: 2010Q3

REPORT INFORMATION
  Report Type: 
  Country: None (occurrence: None)
  Receive Date: 20100830
  Receipt Date: 20100813
  Transmission Date: 20110219
  Serious: Yes (Hospitalization)
  Sender: FDA-Public Use
  Company Number: DSA_43583_2010

PATIENT
  Age: 76 Year
  Sex: Male

DRUGS (12)
  1. ENALAPRIL MALEATE [Suspect]
     Indication: HYPERTENSION
     Dosage: (10 MG QD ORAL)
     Route: 048
     Dates: start: 20070719, end: 20100719
  2. AMIKACIN [Suspect]
     Indication: URINARY TRACT INFECTION
     Dosage: (500 MG/2 ML TID)
     Dates: start: 20100714, end: 20100719
  3. POTASSIUM (POTASSIUM - POTASSIUM) (NOT SPECIFIED) [Suspect]
     Indication: HYPOKALAEMIA
     Dosage: (DF ORAL)
     Route: 048
     Dates: start: 20100505, end: 20100719
  4. XANAX [Concomitant]
  5. ASPIRIN [Concomitant]
  6. ATENOLOL [Concomitant]
  7. PROSTIDE [Concomitant]
  8. ESIDRIX [Concomitant]
  9. HUMULIN /00646001/ [Concomitant]
  10. DEPONIT [Concomitant]
  11. MOVICOL /01625101/ [Concomitant]
  12. SEROQUEL [Concomitant]

REACTIONS (2)
  - HYPERKALAEMIA [None]
  - RENAL FAILURE ACUTE [None]
